FAERS Safety Report 7583506-6 (Version None)
Quarter: 2011Q2

REPORT INFORMATION
  Report Type: 
  Country: None (occurrence: None)
  Receive Date: 20110630
  Receipt Date: 20110620
  Transmission Date: 20111010
  Serious: Yes (Other)
  Sender: FDA-Public Use
  Company Number: US-BAYER-2011-028975

PATIENT
  Age: 30 Year
  Sex: Female
  Weight: 59 kg

DRUGS (6)
  1. VICODIN [Concomitant]
  2. NAPROSYN [Concomitant]
  3. YAZ [Suspect]
     Indication: CONTRACEPTION
     Dosage: 1 DF, QD
     Route: 048
     Dates: start: 20061205, end: 20090901
  4. PROTONIX [Concomitant]
  5. PAXIL CR [Concomitant]
  6. VALTREX [Concomitant]

REACTIONS (7)
  - NAUSEA [None]
  - CHOLECYSTITIS CHRONIC [None]
  - MUSCULOSKELETAL PAIN [None]
  - GALLBLADDER INJURY [None]
  - ABDOMINAL PAIN [None]
  - BILIARY DYSKINESIA [None]
  - CHEST PAIN [None]
